FAERS Safety Report 9424709 (Version 1)
Quarter: 2013Q3

REPORT INFORMATION
  Report Type: Spontaneous
  Country: CO (occurrence: CO)
  Receive Date: 20130729
  Receipt Date: 20130729
  Transmission Date: 20140515
  Serious: Yes (Death, Other)
  Sender: FDA-Public Use
  Company Number: CO-PFIZER INC-2013218523

PATIENT
  Age: 84 Year
  Sex: Female

DRUGS (2)
  1. LIPITOR [Suspect]
     Indication: BLOOD CHOLESTEROL
     Dosage: 40 MG, DAILY
     Route: 048
     Dates: start: 2003
  2. ZOLOF [Suspect]
     Indication: DEMENTIA ALZHEIMER^S TYPE
     Dosage: 100 MG, DAILY
     Route: 048
     Dates: start: 2007

REACTIONS (4)
  - Diabetic coma [Fatal]
  - Cardio-respiratory arrest [Fatal]
  - Gastrointestinal carcinoma [Unknown]
  - Blood glucose increased [Unknown]
